FAERS Safety Report 4735347-2 (Version None)
Quarter: 2005Q3

REPORT INFORMATION
  Report Type: 
  Country: None (occurrence: None)
  Receive Date: 20050805
  Receipt Date: 20050725
  Transmission Date: 20060218
  Serious: Yes (Hospitalization)
  Sender: FDA-Public Use
  Company Number: FR-ROCHE-411797

PATIENT
  Age: 46 Year
  Sex: Female

DRUGS (6)
  1. CLONAZEPAM [Suspect]
     Indication: DRUG USE FOR UNKNOWN INDICATION
     Route: 048
     Dates: start: 20050705, end: 20050705
  2. CLONAZEPAM [Suspect]
     Route: 048
  3. URBANYL [Suspect]
     Indication: DRUG USE FOR UNKNOWN INDICATION
     Route: 048
     Dates: start: 20050705, end: 20050705
  4. LOXAPAC [Suspect]
     Indication: SUICIDAL IDEATION
     Route: 048
     Dates: start: 20050706, end: 20050707
  5. DEPAKENE [Suspect]
     Indication: DRUG USE FOR UNKNOWN INDICATION
     Route: 048
     Dates: start: 20050705, end: 20050705
  6. LYSANXIA [Concomitant]

REACTIONS (8)
  - AGITATION [None]
  - HYPOTONIA [None]
  - MALAISE [None]
  - MIOSIS [None]
  - MULTIPLE DRUG OVERDOSE [None]
  - OVERDOSE [None]
  - SOMNOLENCE [None]
  - SUICIDE ATTEMPT [None]
